FAERS Safety Report 15778403 (Version 1)
Quarter: 2018Q4

REPORT INFORMATION
  Report Type: Spontaneous
  Country: US (occurrence: US)
  Receive Date: 20181231
  Receipt Date: 20181231
  Transmission Date: 20190205
  Serious: No
  Sender: FDA-Public Use
  Company Number: US-BAYER-2018-238756

PATIENT

DRUGS (7)
  1. COD LIVER OIL [Concomitant]
     Active Substance: COD LIVER OIL
  2. ADRENAL [Concomitant]
     Active Substance: EPINEPHRINE
     Dosage: UNK
  3. DAILY NUTRIENT [Concomitant]
     Dosage: UNK
  4. MAGNESIUM [Concomitant]
     Active Substance: MAGNESIUM
     Dosage: 2 DF, QD
  5. CANNABIDIOL [Concomitant]
     Active Substance: CANNABIDIOL
     Dosage: UNK
  6. BORAGE OIL [Concomitant]
     Active Substance: BORAGE OIL
     Dosage: UNK
  7. MIDOL EXTENDED RELIEF [Suspect]
     Active Substance: NAPROXEN SODIUM
     Indication: PAIN
     Dosage: 5 DF, QD

REACTIONS (8)
  - Muscle spasms [None]
  - Impaired work ability [Unknown]
  - Feeling of body temperature change [Unknown]
  - Dysmenorrhoea [None]
  - Therapeutic response unexpected [Unknown]
  - Acne [Unknown]
  - Feeding disorder [Unknown]
  - Underdose [Unknown]
